FAERS Safety Report 10127099 (Version 2)
Quarter: 2014Q2

REPORT INFORMATION
  Report Type: Spontaneous
  Country: TW (occurrence: TW)
  Receive Date: 20140428
  Receipt Date: 20140501
  Transmission Date: 20141212
  Serious: Yes (Other)
  Sender: FDA-Public Use
  Company Number: TW-ROCHE-1389632

PATIENT
  Age: 56 Year
  Sex: Female

DRUGS (7)
  1. LUCENTIS [Suspect]
     Indication: PRODUCT USED FOR UNKNOWN INDICATION
     Route: 050
     Dates: start: 20120421
  2. LUCENTIS [Suspect]
     Route: 050
     Dates: start: 20120625
  3. LUCENTIS [Suspect]
     Route: 050
     Dates: start: 20120728
  4. LUCENTIS [Suspect]
     Route: 050
     Dates: start: 20120901
  5. LUCENTIS [Suspect]
     Route: 050
     Dates: start: 20121013
  6. LUCENTIS [Suspect]
     Route: 050
     Dates: start: 20130831
  7. LUCENTIS [Suspect]
     Route: 050
     Dates: start: 20131130

REACTIONS (1)
  - Detachment of retinal pigment epithelium [Recovering/Resolving]
